FAERS Safety Report 9733912 (Version 1)
Quarter: 2013Q4

REPORT INFORMATION
  Report Type: Spontaneous
  Country: US (occurrence: US)
  Receive Date: 20131205
  Receipt Date: 20131205
  Transmission Date: 20140711
  Serious: Yes (Death)
  Sender: FDA-Public Use
  Company Number: US-INCYTE CORPORATION-2013IN002898

PATIENT
  Age: 71 Year
  Sex: Male

DRUGS (1)
  1. JAKAFI [Suspect]
     Dosage: 20 MG, BID
     Route: 048
     Dates: start: 20131011, end: 201311

REACTIONS (1)
  - Death [Fatal]
